FAERS Safety Report 7017696-0 (Version None)
Quarter: 2010Q3

REPORT INFORMATION
  Report Type: 
  Country: None (occurrence: None)
  Receive Date: 20100927
  Receipt Date: 20100927
  Transmission Date: 20110219
  Serious: Yes (Hospitalization)
  Sender: FDA-Public Use
  Company Number: None

PATIENT
  Age: 65 Year
  Sex: Female
  Weight: 55.3388 kg

DRUGS (1)
  1. CRESTOR [Suspect]
     Indication: BLOOD CHOLESTEROL INCREASED
     Dates: start: 20100806, end: 20100920

REACTIONS (5)
  - ASTHENIA [None]
  - CHEST PAIN [None]
  - FEELING ABNORMAL [None]
  - HYPERHIDROSIS [None]
  - MUSCULAR WEAKNESS [None]
